FAERS Safety Report 18379763 (Version 1)
Quarter: 2020Q4

REPORT INFORMATION
  Report Type: Spontaneous
  Country: US (occurrence: US)
  Receive Date: 20201013
  Receipt Date: 20201013
  Transmission Date: 20210114
  Serious: No
  Sender: FDA-Public Use
  Company Number: US-BAUSCH-BL-2020-027892

PATIENT
  Sex: Male

DRUGS (1)
  1. PENLAC [Suspect]
     Active Substance: CICLOPIROX
     Indication: NAIL INFECTION
     Route: 065

REACTIONS (1)
  - Drug ineffective [Unknown]
